FAERS Safety Report 17320532 (Version 1)
Quarter: 2020Q1

REPORT INFORMATION
  Report Type: Other
  Country: US (occurrence: US)
  Receive Date: 20200126
  Receipt Date: 20200126
  Transmission Date: 20200409
  Serious: No
  Sender: FDA-Public Use
  Company Number: US-ACORDA-ACO_157632_2019

PATIENT
  Age: 60 Year
  Sex: Female
  Weight: 43.08 kg

DRUGS (2)
  1. AMPYRA [Suspect]
     Active Substance: DALFAMPRIDINE
     Indication: MULTIPLE SCLEROSIS
  2. AMPYRA [Suspect]
     Active Substance: DALFAMPRIDINE
     Indication: GAIT DISTURBANCE
     Dosage: 10 MILLIGRAM, BID
     Route: 048
     Dates: start: 20190225

REACTIONS (6)
  - Product dose omission [Unknown]
  - Feeling jittery [Recovered/Resolved]
  - Fatigue [Unknown]
  - Condition aggravated [Recovered/Resolved]
  - Ill-defined disorder [Recovered/Resolved]
  - Dysgraphia [Recovered/Resolved]

NARRATIVE: CASE EVENT DATE: 20190306
